FAERS Safety Report 5399744-7 (Version None)
Quarter: 2007Q3

REPORT INFORMATION
  Report Type: 
  Country: None (occurrence: None)
  Receive Date: 20070727
  Receipt Date: 20070717
  Transmission Date: 20080115
  Serious: Yes (Other)
  Sender: FDA-Public Use
  Company Number: GB-PFIZER INC-2007060688

PATIENT
  Age: 52 Year
  Sex: Female

DRUGS (4)
  1. CHAMPIX [Suspect]
     Indication: SMOKING CESSATION THERAPY
     Route: 048
  2. METFORMIN HCL [Concomitant]
  3. NOVORAPID [Concomitant]
     Dosage: FREQ:AT MEAL TIMES
  4. LANTUS [Concomitant]

REACTIONS (1)
  - BLOOD GLUCOSE ABNORMAL [None]
